FAERS Safety Report 15466880 (Version 1)
Quarter: 2018Q4

REPORT INFORMATION
  Report Type: Spontaneous
  Country: GB (occurrence: GB)
  Receive Date: 20181005
  Receipt Date: 20181005
  Transmission Date: 20190204
  Serious: Yes (Other)
  Sender: FDA-Public Use
  Company Number: GB-TEVA-2018-GB-960976

PATIENT
  Age: 9 Year
  Sex: Female
  Weight: 30 kg

DRUGS (10)
  1. OTOMIZE [Concomitant]
     Active Substance: DEXAMETHASONE\NEOMYCIN SULFATE
     Dosage: INTO THE AFFECTED EAR(S) THREE TIMES ...
     Route: 065
     Dates: start: 20180720, end: 20180727
  2. ONDANSETRON [Concomitant]
     Active Substance: ONDANSETRON
     Dosage: 2 DOSAGE FORMS DAILY;
     Route: 065
     Dates: start: 20180719, end: 20180723
  3. PHENOXYMETHYLPENICILLIN [Suspect]
     Active Substance: PENICILLIN V
     Dosage: 20 ML DAILY; 250MG/5ML
     Route: 048
     Dates: start: 20180807
  4. SUDOCREM [Concomitant]
     Active Substance: LANOLIN\ZINC OXIDE
     Dosage: USE AS DIRECTED
     Route: 065
     Dates: start: 20180723, end: 20180820
  5. OXYBUTYNIN. [Concomitant]
     Active Substance: OXYBUTYNIN CHLORIDE
     Dosage: CAN INCREASE TO 2 DAILY.
     Route: 065
     Dates: start: 20170412
  6. PARACETAMOL [Concomitant]
     Active Substance: ACETAMINOPHEN
     Route: 065
     Dates: start: 20180720, end: 20180817
  7. TRIMETHOPRIM. [Concomitant]
     Active Substance: TRIMETHOPRIM
     Route: 065
     Dates: start: 20180723, end: 20180726
  8. LACTULOSE. [Concomitant]
     Active Substance: LACTULOSE
     Dosage: 20 ML DAILY;
     Route: 065
     Dates: start: 20180723, end: 20180808
  9. BONJELA [Concomitant]
     Active Substance: CETALKONIUM CHLORIDE\CHOLINE SALICYLATE\MENTHOL
     Dosage: USE AS DIRECTED
     Route: 065
     Dates: start: 20180813, end: 20180820
  10. IBUPROFEN. [Concomitant]
     Active Substance: IBUPROFEN
     Indication: PAIN
     Route: 065
     Dates: start: 20180720, end: 20180727

REACTIONS (1)
  - Oral mucosal blistering [Recovered/Resolved]

NARRATIVE: CASE EVENT DATE: 20180813
